FAERS Safety Report 9470937 (Version 2)
Quarter: 2013Q3

REPORT INFORMATION
  Report Type: Report from Study
  Country: DE (occurrence: DE)
  Receive Date: 20130822
  Receipt Date: 20130822
  Transmission Date: 20140515
  Serious: Yes (Hospitalization)
  Sender: FDA-Public Use
  Company Number: DE-GENZYME-CAMP-1002953

PATIENT
  Age: 78 Year
  Sex: Female
  Weight: 82 kg

DRUGS (15)
  1. CAMPATH [Suspect]
     Indication: T-CELL PROLYMPHOCYTIC LEUKAEMIA
     Dosage: 30 MG, QD (4 CYCLES)
     Route: 058
     Dates: start: 20130206
  2. FLUDARA [Suspect]
     Indication: T-CELL PROLYMPHOCYTIC LEUKAEMIA
     Dosage: 36 MG, QD
     Route: 042
     Dates: start: 20130206
  3. MITOXANTRONE [Suspect]
     Indication: T-CELL PROLYMPHOCYTIC LEUKAEMIA
     Dosage: 11 MG, QD
     Route: 042
     Dates: start: 20130206
  4. CYCLOPHOSPHAMIDE [Suspect]
     Indication: T-CELL PROLYMPHOCYTIC LEUKAEMIA
     Dosage: 364 MG, QD
     Route: 042
     Dates: start: 20130206
  5. ALLOPURINOL [Concomitant]
     Indication: PRODUCT USED FOR UNKNOWN INDICATION
     Dosage: 1 IN EVENING
     Route: 065
  6. VALTREX [Concomitant]
     Indication: PRODUCT USED FOR UNKNOWN INDICATION
     Dosage: 1 IN MORNING AND 1 IN EVENING
     Route: 065
  7. COTRIM [Concomitant]
     Indication: PRODUCT USED FOR UNKNOWN INDICATION
     Dosage: 1 IN THE MORNING AND 1 IN EVENING (MON, WED AND FRI)
     Route: 065
  8. EUTHYROX [Concomitant]
     Indication: PRODUCT USED FOR UNKNOWN INDICATION
     Dosage: 1 IN THE MORNING
     Route: 065
  9. METFORMIN [Concomitant]
     Indication: PRODUCT USED FOR UNKNOWN INDICATION
     Dosage: 1/2 IN THE MORNING AND 1/2 IN EVENING
     Route: 065
  10. BELOC ZOK [Concomitant]
     Indication: PRODUCT USED FOR UNKNOWN INDICATION
     Dosage: 1 IN THE MORNING 1 IN THE EVENING
     Route: 065
  11. ACC [Concomitant]
     Indication: PRODUCT USED FOR UNKNOWN INDICATION
     Dosage: 1 IN THE MORNING
     Route: 065
  12. FURO [Concomitant]
     Indication: PRODUCT USED FOR UNKNOWN INDICATION
     Dosage: 1 IN THE MORNING
     Route: 065
  13. SPIRONOLACTONE [Concomitant]
     Indication: PRODUCT USED FOR UNKNOWN INDICATION
     Dosage: 1/2 IN THE AFTERNOON
     Route: 065
  14. CLEXANE [Concomitant]
     Indication: PRODUCT USED FOR UNKNOWN INDICATION
     Dosage: 1 IN THE EVENING
     Route: 065
  15. LAXOBERAL [Concomitant]
     Indication: PRODUCT USED FOR UNKNOWN INDICATION
     Dosage: 15 DROPS IN THE EVENING
     Route: 065

REACTIONS (3)
  - Dehydration [Unknown]
  - Hypotension [Unknown]
  - Anaemia [Recovered/Resolved]
